FAERS Safety Report 4319723-8 (Version None)
Quarter: 2004Q1

REPORT INFORMATION
  Report Type: 
  Country: None (occurrence: None)
  Receive Date: 20040316
  Receipt Date: 20040302
  Transmission Date: 20041129
  Serious: Yes (Death, Hospitalization)
  Sender: FDA-Public Use
  Company Number: US-JNJFOC-20030903697

PATIENT
  Age: 86 Year
  Sex: Female

DRUGS (6)
  1. REMICADE [Suspect]
     Indication: RHEUMATOID ARTHRITIS
     Dosage: INTRAVENOUS
     Route: 042
     Dates: start: 20010101
  2. PROPOXY (DEXTROPROPOXYPHENE) [Concomitant]
  3. AMITRYPTYLINE (AMITRIPTYLINE) [Concomitant]
  4. NORVASC [Concomitant]
  5. ATENOLOL [Concomitant]
  6. ASPIRIN [Concomitant]

REACTIONS (61)
  - ABDOMINAL PAIN [None]
  - ACID FAST BACILLI INFECTION [None]
  - ALCOHOL USE [None]
  - AMNESIA [None]
  - ANAEMIA [None]
  - ANOREXIA [None]
  - ASCITES [None]
  - ATRIAL FIBRILLATION [None]
  - BILE DUCT OBSTRUCTION [None]
  - BRONCHITIS [None]
  - CARDIAC FAILURE CONGESTIVE [None]
  - CEREBRAL ATROPHY [None]
  - CHEST X-RAY ABNORMAL [None]
  - CHOLECYSTITIS [None]
  - CHRONIC OBSTRUCTIVE AIRWAYS DISEASE [None]
  - COMA [None]
  - CONVULSION [None]
  - CREUTZFELDT-JAKOB DISEASE [None]
  - DEMENTIA [None]
  - DEPRESSION [None]
  - DRY SKIN [None]
  - DYSPHAGIA [None]
  - EMPHYSEMA [None]
  - ENCEPHALITIS [None]
  - ENCEPHALITIS HERPES [None]
  - ERYTHEMA [None]
  - FUNGAL RASH [None]
  - GAIT DISTURBANCE [None]
  - GALLBLADDER OEDEMA [None]
  - GENITAL CANDIDIASIS [None]
  - HEPATITIS [None]
  - HEPATOCELLULAR DAMAGE [None]
  - HEPATOMEGALY [None]
  - HERPES ZOSTER [None]
  - HYPERTENSION [None]
  - HYPERVOLAEMIA [None]
  - HYPOALBUMINAEMIA [None]
  - HYPOKALAEMIA [None]
  - INCONTINENCE [None]
  - LIVER FUNCTION TEST ABNORMAL [None]
  - MENTAL STATUS CHANGES [None]
  - METABOLIC ENCEPHALOPATHY [None]
  - NODULE [None]
  - OPEN WOUND [None]
  - OSTEOARTHRITIS [None]
  - PLEURAL EFFUSION [None]
  - PNEUMONIA [None]
  - PNEUMONIA ASPIRATION [None]
  - POST HERPETIC NEURALGIA [None]
  - PSEUDOMONAS INFECTION [None]
  - PULMONARY OEDEMA [None]
  - RENAL CYST [None]
  - RESPIRATORY FAILURE [None]
  - SINUS TACHYCARDIA [None]
  - SINUSITIS [None]
  - SPINAL OSTEOARTHRITIS [None]
  - SPONDYLOSIS [None]
  - STAPHYLOCOCCAL INFECTION [None]
  - TOXIC INDUCED ENCEPHALOPATHY [None]
  - TUBERCULOSIS [None]
  - WEIGHT DECREASED [None]
